FAERS Safety Report 6137186-7 (Version None)
Quarter: 2009Q1

REPORT INFORMATION
  Report Type: 
  Country: None (occurrence: None)
  Receive Date: 20090330
  Receipt Date: 20090324
  Transmission Date: 20090719
  Serious: Yes (Other)
  Sender: FDA-Public Use
  Company Number: US-JNJFOC-20090306431

PATIENT
  Age: 81 Year
  Sex: Female
  Weight: 52.16 kg

DRUGS (4)
  1. PEPCID COMPLETE [Suspect]
     Route: 048
  2. PEPCID COMPLETE [Suspect]
     Indication: NAUSEA
     Dosage: 1 CHEWABLE TABLET 3-4 TIMES A WEEK
     Route: 048
  3. HYPERTENSIVE MEDICATION [Concomitant]
     Indication: HYPERTENSION
  4. UNSPECIFIED MEDICATION [Concomitant]

REACTIONS (1)
  - HYPERTENSION [None]
